FAERS Safety Report 7112392-3 (Version None)
Quarter: 2010Q4

REPORT INFORMATION
  Report Type: 
  Country: None (occurrence: None)
  Receive Date: 20101119
  Receipt Date: 20101020
  Transmission Date: 20110411
  Serious: No
  Sender: FDA-Public Use
  Company Number: A0885320A

PATIENT
  Age: 64 Year
  Sex: Male
  Weight: 73.6 kg

DRUGS (5)
  1. AVODART [Suspect]
     Dosage: .5MG PER DAY
     Route: 065
     Dates: start: 20100701
  2. FLOMAX [Suspect]
     Dosage: .4MG PER DAY
     Route: 065
     Dates: start: 20100501, end: 20100601
  3. LISINOPRIL [Concomitant]
     Indication: BLOOD PRESSURE
  4. LEVOTHYROXINE SODIUM [Concomitant]
     Indication: HYPOTHYROIDISM
     Dosage: 50MCG PER DAY
     Dates: start: 20090101
  5. RED YEAST RICE [Concomitant]

REACTIONS (1)
  - DRUG INEFFECTIVE [None]
